FAERS Safety Report 16407057 (Version 2)
Quarter: 2019Q2

REPORT INFORMATION
  Report Type: Spontaneous
  Country: AU (occurrence: AU)
  Receive Date: 20190608
  Receipt Date: 20190611
  Transmission Date: 20190711
  Serious: Yes (Other)
  Sender: FDA-Public Use
  Company Number: AU-JNJFOC-20190608006

PATIENT
  Age: 82 Year
  Sex: Female

DRUGS (2)
  1. REGAINE WOMENS [Suspect]
     Active Substance: MINOXIDIL
     Route: 061
  2. REGAINE WOMENS [Suspect]
     Active Substance: MINOXIDIL
     Indication: PRODUCT USED FOR UNKNOWN INDICATION
     Route: 061

REACTIONS (2)
  - Headache [Unknown]
  - Atrial fibrillation [Unknown]
